FAERS Safety Report 17258426 (Version 1)
Quarter: 2020Q1

REPORT INFORMATION
  Report Type: Spontaneous
  Country: DE (occurrence: DE)
  Receive Date: 20200110
  Receipt Date: 20200110
  Transmission Date: 20200409
  Serious: Yes (Other)
  Sender: FDA-Public Use
  Company Number: DE-ASTRAZENECA-2020SE04177

PATIENT
  Sex: Female
  Weight: 85 kg

DRUGS (1)
  1. ROFLUMILAST. [Suspect]
     Active Substance: ROFLUMILAST
     Indication: ASTHMA
     Route: 048

REACTIONS (5)
  - Drug ineffective [Unknown]
  - Product use in unapproved indication [Unknown]
  - Acute respiratory failure [Unknown]
  - Off label use [Unknown]
  - Adrenal insufficiency [Unknown]
